FAERS Safety Report 13967645 (Version 1)
Quarter: 2017Q3

REPORT INFORMATION
  Report Type: Spontaneous
  Country: ES (occurrence: ES)
  Receive Date: 20170914
  Receipt Date: 20170914
  Transmission Date: 20171128
  Serious: Yes (Death)
  Sender: FDA-Public Use
  Company Number: ES-CIPLA LTD.-2017ES16459

PATIENT

DRUGS (3)
  1. MANNITOL. [Concomitant]
     Active Substance: MANNITOL
     Dosage: 0.25 G/K, ALONG WITH CISPLATIN
  2. IRINOTECAN [Suspect]
     Active Substance: IRINOTECAN
     Indication: ASTROCYTOMA
     Dosage: UNK, WEEKLY
  3. CISPLATIN. [Suspect]
     Active Substance: CISPLATIN
     Indication: ASTROCYTOMA
     Dosage: 30 MG/M2, WEEKLY

REACTIONS (2)
  - Disease progression [Fatal]
  - Adverse event [Unknown]
